FAERS Safety Report 9234125 (Version 1)
Quarter: 2013Q2

REPORT INFORMATION
  Report Type: Spontaneous
  Country: IN (occurrence: IN)
  Receive Date: 20130416
  Receipt Date: 20130416
  Transmission Date: 20140414
  Serious: Yes (Hospitalization, Other)
  Sender: FDA-Public Use
  Company Number: IN-PFIZER INC-2013116086

PATIENT
  Age: 20 Year
  Sex: Female

DRUGS (1)
  1. PHENYTOIN [Suspect]
     Indication: CONVULSION PROPHYLAXIS
     Dosage: 300 MG/ DAY

REACTIONS (7)
  - Toxicity to various agents [Unknown]
  - Cerebellar ataxia [Not Recovered/Not Resolved]
  - Cerebellar cognitive affective syndrome [Not Recovered/Not Resolved]
  - Dyskinesia [Recovering/Resolving]
  - Chorea [Recovering/Resolving]
  - Cerebellar atrophy [Unknown]
  - Anticonvulsant drug level increased [Unknown]
